FAERS Safety Report 12853926 (Version 2)
Quarter: 2016Q4

REPORT INFORMATION
  Report Type: Spontaneous
  Country: US (occurrence: US)
  Receive Date: 20161017
  Receipt Date: 20161117
  Transmission Date: 20170207
  Serious: Yes (Hospitalization, Other)
  Sender: FDA-Public Use
  Company Number: US-ALEXION PHARMACEUTICALS INC-A201607695

PATIENT
  Sex: Female

DRUGS (1)
  1. SOLIRIS [Suspect]
     Active Substance: ECULIZUMAB
     Indication: HAEMOLYTIC URAEMIC SYNDROME
     Dosage: UNK
     Route: 042

REACTIONS (13)
  - Thrombosis [Unknown]
  - Haematocrit abnormal [Recovered/Resolved]
  - Blood calcium abnormal [Recovered/Resolved]
  - Oedema [Unknown]
  - Protein total abnormal [Recovered/Resolved]
  - Blood creatinine abnormal [Recovered/Resolved]
  - Blood lactate dehydrogenase abnormal [Recovered/Resolved]
  - White blood cell count abnormal [Recovered/Resolved]
  - Haemoglobin abnormal [Recovered/Resolved]
  - Blood urea abnormal [Recovered/Resolved]
  - Platelet count abnormal [Recovered/Resolved]
  - Blood albumin abnormal [Recovered/Resolved]
  - Blood glucose abnormal [Recovered/Resolved]

NARRATIVE: CASE EVENT DATE: 201610
